FAERS Safety Report 8520436-7 (Version None)
Quarter: 2012Q3

REPORT INFORMATION
  Report Type: 
  Country: None (occurrence: None)
  Receive Date: 20120719
  Receipt Date: 20120710
  Transmission Date: 20120928
  Serious: Yes (Hospitalization, Disabling, Other)
  Sender: FDA-Public Use
  Company Number: US-009507513-1008USA00263

PATIENT

DRUGS (7)
  1. FOSAMAX [Suspect]
     Dosage: 70 MG, QW
     Route: 048
     Dates: start: 20080226, end: 20090101
  2. FOSAMAX [Suspect]
     Indication: OSTEOPENIA
     Dosage: 70 MG, QW
     Route: 048
     Dates: start: 20020521, end: 20040311
  3. FOSAMAX [Suspect]
     Dosage: 70 MG, QW
     Route: 048
     Dates: start: 20060113, end: 20080226
  4. ACTONEL [Suspect]
     Dates: start: 20040311, end: 20051216
  5. LEVOTIROXINA S.O [Concomitant]
     Indication: THYROID DISORDER
     Dates: start: 19700101
  6. MK-9278 [Concomitant]
  7. FOSAMAX [Suspect]
     Indication: OSTEOPOROSIS
     Dosage: 10 MG, QD
     Route: 048
     Dates: start: 19981204, end: 20020521

REACTIONS (65)
  - ARTHROPATHY [None]
  - INJURY [None]
  - EPISTAXIS [None]
  - OSTEOARTHRITIS [None]
  - DRUG INEFFECTIVE [None]
  - OSTEOPOROSIS [None]
  - LOW TURNOVER OSTEOPATHY [None]
  - FATIGUE [None]
  - VERTIGO POSITIONAL [None]
  - DEPRESSION [None]
  - EYE PAIN [None]
  - DYSLIPIDAEMIA [None]
  - ANORECTAL DISORDER [None]
  - MUSCLE CONTRACTURE [None]
  - BONE METABOLISM DISORDER [None]
  - HALLUCINATION [None]
  - BLOOD CHOLESTEROL INCREASED [None]
  - UPPER RESPIRATORY TRACT INFECTION [None]
  - PRESYNCOPE [None]
  - HYPOKALAEMIA [None]
  - MENINGITIS VIRAL [None]
  - ANGER [None]
  - ORAL INFECTION [None]
  - SPONDYLOLISTHESIS [None]
  - LIGAMENT SPRAIN [None]
  - OCCULT BLOOD POSITIVE [None]
  - SWELLING [None]
  - ABDOMINAL PAIN [None]
  - FEMUR FRACTURE [None]
  - STRESS FRACTURE [None]
  - SCIATICA [None]
  - NEUROPATHY PERIPHERAL [None]
  - INFLAMMATORY BOWEL DISEASE [None]
  - PIRIFORMIS SYNDROME [None]
  - HAEMATOCRIT DECREASED [None]
  - FRUSTRATION [None]
  - IMPAIRED HEALING [None]
  - TOOTH DISORDER [None]
  - CATARACT [None]
  - INTERVERTEBRAL DISC PROTRUSION [None]
  - DIVERTICULUM [None]
  - DRUG INTOLERANCE [None]
  - PROCEDURAL HYPOTENSION [None]
  - INSOMNIA [None]
  - BREAST DISORDER [None]
  - CONGENITAL CEREBROVASCULAR ANOMALY [None]
  - GINGIVAL DISORDER [None]
  - COLITIS ULCERATIVE [None]
  - CHEST PAIN [None]
  - PATELLOFEMORAL PAIN SYNDROME [None]
  - URINARY TRACT INFECTION [None]
  - VISION BLURRED [None]
  - BONE SCAN ABNORMAL [None]
  - INTERVERTEBRAL DISC DEGENERATION [None]
  - ARTHRALGIA [None]
  - HEADACHE [None]
  - MYALGIA [None]
  - DIVERTICULAR PERFORATION [None]
  - PLANTAR FASCIITIS [None]
  - HAEMORRHOIDS [None]
  - CONCUSSION [None]
  - ENTHESOPATHY [None]
  - MUSCLE RUPTURE [None]
  - PAIN IN EXTREMITY [None]
  - MUSCULOSKELETAL PAIN [None]
